FAERS Safety Report 21822949 (Version 1)
Quarter: 2023Q1

REPORT INFORMATION
  Report Type: Spontaneous
  Country: US (occurrence: None)
  Receive Date: 20230104
  Receipt Date: 20230104
  Transmission Date: 20230418
  Serious: Yes (Death)
  Sender: FDA-Public Use
  Company Number: None

PATIENT
  Sex: Male

DRUGS (3)
  1. HUMIRA [Suspect]
     Active Substance: ADALIMUMAB
     Indication: Colitis ulcerative
     Dosage: 40 MG/0.4ML  SUBCUTANEOUS??INJECT 0.4 MLS (40 MG TOTAL) UNDER THE SKIN (SUBCUTANEOUS INJECTION) EVER
     Route: 058
     Dates: start: 20200416
  2. ANTACID [Concomitant]
  3. PAXIL [Concomitant]

REACTIONS (1)
  - Death [None]
